FAERS Safety Report 5781750-1 (Version None)
Quarter: 2008Q2

REPORT INFORMATION
  Report Type: 
  Country: None (occurrence: None)
  Receive Date: 20080623
  Receipt Date: 20080108
  Transmission Date: 20081010
  Serious: No
  Sender: FDA-Public Use
  Company Number: US-ASTRAZENECA-2007UW26092

PATIENT
  Age: 6 Year
  Sex: Male
  Weight: 23.1 kg

DRUGS (2)
  1. RHINOCORT [Suspect]
     Indication: MULTIPLE ALLERGIES
     Route: 045
     Dates: start: 20071101
  2. ZYRTEC [Concomitant]

REACTIONS (2)
  - ENURESIS [None]
  - EPISTAXIS [None]
